FAERS Safety Report 15929944 (Version 1)
Quarter: 2019Q1

REPORT INFORMATION
  Report Type: Spontaneous
  Country: DK (occurrence: DK)
  Receive Date: 20190206
  Receipt Date: 20190206
  Transmission Date: 20190417
  Serious: Yes (Hospitalization, Other)
  Sender: FDA-Public Use
  Company Number: DK-BRISTOL-MYERS SQUIBB COMPANY-BMS-2019-008493

PATIENT
  Age: 78 Year
  Sex: Female

DRUGS (8)
  1. VAGIFEM [Concomitant]
     Active Substance: ESTRADIOL
     Indication: HORMONE THERAPY
     Dosage: 20 G PER WEEK
     Route: 067
     Dates: start: 20140306
  2. PARACETAMOL [Concomitant]
     Active Substance: ACETAMINOPHEN
     Indication: PAIN
     Dosage: 4000 MG PER DAY
     Route: 048
     Dates: start: 20171213
  3. ORENCIA [Suspect]
     Active Substance: ABATACEPT
     Indication: PSORIASIS
     Dosage: 125 MG, QWK
     Route: 058
     Dates: start: 20171101, end: 20180205
  4. SPARKAL [Concomitant]
     Active Substance: AMILORIDE HYDROCHLORIDE
     Indication: HYPERTENSION
     Dosage: 1 DF PER DAY
     Route: 048
     Dates: start: 20151204
  5. SOLIFENACIN [Concomitant]
     Active Substance: SOLIFENACIN
     Indication: DYSURIA
     Dosage: 10 MG PER DAY
     Route: 048
     Dates: start: 20121028
  6. ANASTROZOLE. [Concomitant]
     Active Substance: ANASTROZOLE
     Indication: BREAST CANCER FEMALE
     Dosage: 1 MG PER DAY
     Route: 048
     Dates: start: 20160708
  7. ATORVASTATIN [Concomitant]
     Active Substance: ATORVASTATIN
     Indication: CARDIOVASCULAR EVENT PROPHYLAXIS
     Dosage: 40 MG PER DAY
     Route: 048
     Dates: start: 20170814
  8. LANSOPRAZOLE. [Concomitant]
     Active Substance: LANSOPRAZOLE
     Indication: GASTROOESOPHAGEAL REFLUX DISEASE
     Dosage: 30 MG PER DAY
     Route: 048
     Dates: start: 20160725

REACTIONS (5)
  - Oral submucosal fibrosis [Not Recovered/Not Resolved]
  - Product use in unapproved indication [Unknown]
  - Oral pain [Not Recovered/Not Resolved]
  - Lip and/or oral cavity cancer [Recovered/Resolved with Sequelae]
  - Neoplasm malignant [Unknown]

NARRATIVE: CASE EVENT DATE: 20171208
